FAERS Safety Report 9277388 (Version 1)
Quarter: 2013Q2

REPORT INFORMATION
  Report Type: Spontaneous
  Country: US (occurrence: None)
  Receive Date: 20130506
  Receipt Date: 20130506
  Transmission Date: 20140414
  Serious: Yes (Death)
  Sender: FDA-Public Use
  Company Number: None

PATIENT
  Age: 48 Year
  Sex: Male
  Weight: 86.18 kg

DRUGS (1)
  1. CLONAZEPAM [Suspect]
     Indication: ANXIETY
     Dosage: .5MG DAILY PO
     Route: 048
     Dates: start: 20120603, end: 20120727

REACTIONS (3)
  - Abdominal pain [None]
  - Completed suicide [None]
  - Pancreatitis [None]
